FAERS Safety Report 7408527-5 (Version None)
Quarter: 2011Q2

REPORT INFORMATION
  Report Type: 
  Country: None (occurrence: None)
  Receive Date: 20110412
  Receipt Date: 20110407
  Transmission Date: 20111010
  Serious: Yes (Disabling)
  Sender: FDA-Public Use
  Company Number: LB-PFIZER INC-2011077181

PATIENT
  Age: 53 Year
  Sex: Male

DRUGS (4)
  1. AMARYL [Concomitant]
     Indication: DIABETES MELLITUS
     Dosage: 1 MG, 1X/DAY
     Route: 048
     Dates: start: 20000101
  2. CARDULAR [Suspect]
     Indication: DYSLIPIDAEMIA
  3. GLUCOPHAGE [Concomitant]
     Indication: DIABETES MELLITUS
     Dosage: 850 MG, 3X/DAY
     Route: 048
     Dates: start: 20000101
  4. CARDULAR [Suspect]
     Indication: HYPERTENSION
     Dosage: ONCE TIME PER DAY
     Route: 048
     Dates: start: 20110126, end: 20110201

REACTIONS (1)
  - ERECTILE DYSFUNCTION [None]
